FAERS Safety Report 7457504-7 (Version None)
Quarter: 2011Q2

REPORT INFORMATION
  Report Type: 
  Country: None (occurrence: None)
  Receive Date: 20110426
  Receipt Date: 20110411
  Transmission Date: 20111010
  Serious: Yes (Other)
  Sender: FDA-Public Use
  Company Number: AUR-APL-2011-01263

PATIENT
  Age: 80 Year
  Sex: Female

DRUGS (1)
  1. CEPHALEXIN [Suspect]

REACTIONS (1)
  - LICHENOID KERATOSIS [None]
